FAERS Safety Report 14264834 (Version 2)
Quarter: 2017Q4

REPORT INFORMATION
  Report Type: Spontaneous
  Country: AT (occurrence: AT)
  Receive Date: 20171208
  Receipt Date: 20171228
  Transmission Date: 20180321
  Serious: Yes (Hospitalization, Other)
  Sender: FDA-Public Use
  Company Number: AT-PFIZER INC-2017431361

PATIENT
  Age: 51 Year
  Sex: Female

DRUGS (15)
  1. EFECTIN ER [Interacting]
     Active Substance: VENLAFAXINE HYDROCHLORIDE
     Dosage: 150 MG, 1X/DAY
     Dates: start: 20170111, end: 20170130
  2. TOPAMAX [Suspect]
     Active Substance: TOPIRAMATE
     Dosage: 100 MG, 1X/DAY, SINCE MONTHS
     Route: 048
     Dates: end: 20170119
  3. SEROQUEL [Concomitant]
     Active Substance: QUETIAPINE FUMARATE
     Dosage: 300 MG, UNK
     Dates: start: 20170108, end: 20170109
  4. METOPROLOL. [Concomitant]
     Active Substance: METOPROLOL
     Dosage: 50 MG, SINCE MONTHS
  5. TOPAMAX [Suspect]
     Active Substance: TOPIRAMATE
     Dosage: 75 MG, 1X/DAY
     Route: 048
     Dates: start: 20170120, end: 20170129
  6. TOPAMAX [Suspect]
     Active Substance: TOPIRAMATE
     Dosage: 50 MG, 1X/DAY
     Route: 048
     Dates: start: 20170130, end: 20170130
  7. EFECTIN ER [Suspect]
     Active Substance: VENLAFAXINE HYDROCHLORIDE
     Dosage: 225 MG, 1X/DAY
     Dates: start: 201611, end: 20170110
  8. BEZAFIBRAT [Concomitant]
     Active Substance: BEZAFIBRATE
     Dosage: 400 MG, SINCE MONTHS
  9. LYRICA [Interacting]
     Active Substance: PREGABALIN
     Dosage: 300 MG, 1X/DAY, SINCE MONTHS
     Dates: start: 20170130, end: 20170131
  10. BRINTELLIX [Interacting]
     Active Substance: VORTIOXETINE HYDROBROMIDE
     Dosage: 10 MG, 1X/DAY
     Dates: start: 20170131, end: 20170131
  11. LYRICA [Interacting]
     Active Substance: PREGABALIN
     Dosage: 450 MG, 1X/DAY
     Dates: end: 20170129
  12. BRINTELLIX [Interacting]
     Active Substance: VORTIOXETINE HYDROBROMIDE
     Dosage: 20 MG, 1X/DAY, SINCE MONTHS
     Dates: end: 20170130
  13. ANAFRANIL [Interacting]
     Active Substance: CLOMIPRAMINE HYDROCHLORIDE
     Dosage: 75 MG, 1X/DAY, SINCE MONTHS
     Dates: end: 20170112
  14. SEROQUEL [Concomitant]
     Active Substance: QUETIAPINE FUMARATE
     Dosage: 200 MG, UNK
     Dates: start: 20170107, end: 20170107
  15. PANTOLOC [Concomitant]
     Active Substance: PANTOPRAZOLE SODIUM
     Dosage: 40 MG, SINCE MONTHS
     Route: 048

REACTIONS (4)
  - Urinary tract infection [Recovered/Resolved]
  - Drug interaction [Unknown]
  - Delirium [Recovered/Resolved]
  - Hallucinations, mixed [Recovered/Resolved]

NARRATIVE: CASE EVENT DATE: 20170105
